FAERS Safety Report 13613397 (Version 3)
Quarter: 2017Q3

REPORT INFORMATION
  Report Type: Spontaneous
  Country: KR (occurrence: KR)
  Receive Date: 20170605
  Receipt Date: 20170720
  Transmission Date: 20171127
  Serious: No
  Sender: FDA-Public Use
  Company Number: KR-009507513-1706KOR000423

PATIENT
  Age: 41 Year
  Sex: Female
  Weight: 80.2 kg

DRUGS (32)
  1. DEXAMETHASONE SODIUM PHOSPHATE. [Concomitant]
     Active Substance: DEXAMETHASONE SODIUM PHOSPHATE
     Dosage: 15 MG, ONCE
     Route: 042
     Dates: start: 20161128, end: 20161128
  2. SANCUSO [Concomitant]
     Active Substance: GRANISETRON
     Indication: PROPHYLAXIS OF NAUSEA AND VOMITING
     Dosage: 34.3 MG, QD, STRENGTH REPROTED AS ^80.2X66.6 MM^3^, ROUTE OF ADMINISTRATION REPORTED AS ^EXT^
     Dates: start: 20161121
  3. LASIX [Concomitant]
     Active Substance: FUROSEMIDE
     Dosage: 40 MG, ONCE
     Route: 042
     Dates: start: 20161128, end: 20161128
  4. CISPLATIN. [Concomitant]
     Active Substance: CISPLATIN
     Dosage: 70 MG, ONCE (CYCLE 7); STRENGTH: 50 MG/100ML
     Route: 042
     Dates: start: 20161219, end: 20161219
  5. DEXAMETHASONE SODIUM PHOSPHATE. [Concomitant]
     Active Substance: DEXAMETHASONE SODIUM PHOSPHATE
     Dosage: 15 MG, ONCE
     Route: 042
     Dates: start: 20161205, end: 20161205
  6. NASEA [Concomitant]
     Active Substance: RAMOSETRON HYDROCHLORIDE
     Dosage: 0.3 MG, ONCE
     Route: 042
     Dates: start: 20161128, end: 20161128
  7. LASIX [Concomitant]
     Active Substance: FUROSEMIDE
     Indication: PROPHYLAXIS
     Dosage: 40 MG, ONCE
     Route: 042
     Dates: start: 20161121, end: 20161121
  8. EMEND (FOSAPREPITANT DIMEGLUMINE) [Suspect]
     Active Substance: FOSAPREPITANT DIMEGLUMINE
     Dosage: 150 MG, ONCE
     Route: 042
     Dates: start: 20161128, end: 20161128
  9. CISPLATIN. [Concomitant]
     Active Substance: CISPLATIN
     Dosage: 70 MG, ONCE (CYCLE 7); STRENGTH: 50 MG/100ML
     Route: 042
     Dates: start: 20161128, end: 20161128
  10. CISPLATIN. [Concomitant]
     Active Substance: CISPLATIN
     Dosage: 70 MG, ONCE (CYCLE 7); STRENGTH: 50 MG/100ML
     Route: 042
     Dates: start: 20161205, end: 20161205
  11. MANNITOL. [Concomitant]
     Active Substance: MANNITOL
     Dosage: 100 ML, ONCE; STRENGTH REPORTED AS ^20%/100ML (BAG)^
     Route: 042
     Dates: start: 20161219, end: 20161219
  12. ATIVAN [Concomitant]
     Active Substance: LORAZEPAM
     Dosage: 1 MG, ONCE; ROUTE OF ADMINISTRATION REPORTED AS ^INF^
     Dates: start: 20161212, end: 20161212
  13. EMEND (FOSAPREPITANT DIMEGLUMINE) [Suspect]
     Active Substance: FOSAPREPITANT DIMEGLUMINE
     Indication: PROPHYLAXIS OF NAUSEA AND VOMITING
     Dosage: 150 MG, ONCE
     Route: 042
     Dates: start: 20161114, end: 20161114
  14. EMEND (FOSAPREPITANT DIMEGLUMINE) [Suspect]
     Active Substance: FOSAPREPITANT DIMEGLUMINE
     Dosage: 150 MG, ONCE
     Route: 042
     Dates: start: 20161121, end: 20161121
  15. EMEND (FOSAPREPITANT DIMEGLUMINE) [Suspect]
     Active Substance: FOSAPREPITANT DIMEGLUMINE
     Dosage: 150 MG, ONCE
     Route: 042
     Dates: start: 20161219, end: 20161219
  16. DEXAMETHASONE SODIUM PHOSPHATE. [Concomitant]
     Active Substance: DEXAMETHASONE SODIUM PHOSPHATE
     Dosage: 15 MG, ONCE
     Route: 042
     Dates: start: 20161212, end: 20161212
  17. NASEA [Concomitant]
     Active Substance: RAMOSETRON HYDROCHLORIDE
     Indication: PROPHYLAXIS OF NAUSEA AND VOMITING
     Dosage: 0.3 MG, ONCE
     Route: 042
     Dates: start: 20161114, end: 20161114
  18. NASEA [Concomitant]
     Active Substance: RAMOSETRON HYDROCHLORIDE
     Dosage: 0.3 MG, ONCE
     Route: 042
     Dates: start: 20161121, end: 20161121
  19. ATIVAN [Concomitant]
     Active Substance: LORAZEPAM
     Dosage: 1 MG, ONCE; ROUTE OF ADMINISTRATION REPORTED AS ^INF^
     Route: 042
     Dates: start: 20161128, end: 20161128
  20. LASIX [Concomitant]
     Active Substance: FUROSEMIDE
     Dosage: 40 MG, ONCE
     Route: 042
     Dates: start: 20161212, end: 20161212
  21. CISPLATIN. [Concomitant]
     Active Substance: CISPLATIN
     Indication: CERVIX CARCINOMA
     Dosage: 73.28 MG, ONCE (CYCLE 7)
     Route: 042
     Dates: start: 20161114, end: 20161114
  22. DEXAMETHASONE SODIUM PHOSPHATE. [Concomitant]
     Active Substance: DEXAMETHASONE SODIUM PHOSPHATE
     Dosage: 15 MG, ONCE
     Route: 042
     Dates: start: 20161121, end: 20161121
  23. CISPLATIN. [Concomitant]
     Active Substance: CISPLATIN
     Indication: CERVIX CARCINOMA
     Dosage: 72.8 MG, ONCE (CYCLE 7); STRENGTH: 50 MG/100ML
     Route: 042
     Dates: start: 20161121, end: 20161121
  24. DEXAMETHASONE SODIUM PHOSPHATE. [Concomitant]
     Active Substance: DEXAMETHASONE SODIUM PHOSPHATE
     Indication: PROPHYLAXIS OF NAUSEA AND VOMITING
     Dosage: 15 MG, ONCE
     Route: 042
     Dates: start: 20161114, end: 20161114
  25. MANNITOL. [Concomitant]
     Active Substance: MANNITOL
     Dosage: 100 ML, ONCE; STRENGTH REPORTED AS ^20%/100ML (BAG)^
     Route: 042
     Dates: start: 20161212, end: 20161212
  26. EMEND (FOSAPREPITANT DIMEGLUMINE) [Suspect]
     Active Substance: FOSAPREPITANT DIMEGLUMINE
     Dosage: 150 MG, ONCE
     Route: 042
     Dates: start: 20161205, end: 20161205
  27. EMEND (FOSAPREPITANT DIMEGLUMINE) [Suspect]
     Active Substance: FOSAPREPITANT DIMEGLUMINE
     Dosage: 150 MG, ONCE
     Route: 042
     Dates: start: 20161212, end: 20161212
  28. CISPLATIN. [Concomitant]
     Active Substance: CISPLATIN
     Indication: CERVIX CARCINOMA
     Dosage: 70 MG, ONCE (CYCLE 7)
     Route: 042
     Dates: start: 20161212, end: 20161212
  29. NASEA [Concomitant]
     Active Substance: RAMOSETRON HYDROCHLORIDE
     Dosage: 0.3 MG, ONCE
     Route: 042
     Dates: start: 20161205, end: 20161205
  30. LASIX [Concomitant]
     Active Substance: FUROSEMIDE
     Dosage: 40 MG, ONCE
     Route: 042
     Dates: start: 20161219, end: 20161219
  31. MANNITOL. [Concomitant]
     Active Substance: MANNITOL
     Indication: PROPHYLAXIS
     Dosage: 100 ML, ONCE; STRENGTH REPORTED AS ^20%/100ML (BAG)^
     Route: 042
     Dates: start: 20161121, end: 20161121
  32. ATIVAN [Concomitant]
     Active Substance: LORAZEPAM
     Indication: PROPHYLAXIS
     Dosage: 1 MG, ONCE; ROUTE OF ADMINISTRATION REPORTED AS ^INF^
     Route: 030
     Dates: start: 20161121, end: 20161121

REACTIONS (3)
  - Constipation [Recovered/Resolved]
  - Diarrhoea [Recovered/Resolved]
  - Pain [Recovered/Resolved]

NARRATIVE: CASE EVENT DATE: 20161123
